FAERS Safety Report 5078143-1 (Version None)
Quarter: 2006Q3

REPORT INFORMATION
  Report Type: 
  Country: None (occurrence: None)
  Receive Date: 20060808
  Receipt Date: 20060719
  Transmission Date: 20061208
  Serious: Yes (Hospitalization)
  Sender: FDA-Public Use
  Company Number: FR200603001972

PATIENT
  Age: 77 Year
  Sex: Female

DRUGS (8)
  1. FORTEO [Suspect]
     Indication: OSTEOPOROSIS
     Dosage: 20 UG, DAILY (1/D), SUBCUTANEOUS
     Route: 058
     Dates: start: 20060118, end: 20060303
  2. FORTEO [Suspect]
     Indication: OSTEOPOROSIS
     Dosage: 20 UG, DAILY (1/D), SUBCUTANEOUS
     Route: 058
     Dates: start: 20060310
  3. FORTEO [Concomitant]
  4. IRBESARTAN [Concomitant]
  5. PREVISCAN (FLUINDIONE) [Concomitant]
  6. FLECAINIDE ACETATE [Concomitant]
  7. VASTAREL (TRIMETAZIDINE HYDROCHLORIDE) [Concomitant]
  8. VIRLIX (CETIRIZINE HYDROCHLORIDE) [Concomitant]

REACTIONS (6)
  - CHEST PAIN [None]
  - DYSPNOEA EXERTIONAL [None]
  - PAIN IN JAW [None]
  - PLEURAL EFFUSION [None]
  - TOOTH ABSCESS [None]
  - VERTEBROPLASTY [None]
